FAERS Safety Report 10739793 (Version 1)
Quarter: 2015Q1

REPORT INFORMATION
  Report Type: Spontaneous
  Country: FR (occurrence: FR)
  Receive Date: 20150127
  Receipt Date: 20150127
  Transmission Date: 20150721
  Serious: Yes (Hospitalization)
  Sender: FDA-Public Use
  Company Number: FR-ROCHE-1525453

PATIENT
  Age: 45 Year
  Sex: Female

DRUGS (9)
  1. XELODA [Suspect]
     Active Substance: CAPECITABINE
     Indication: BREAST CANCER
     Dosage: 1 100 MG FOR 14 DAYS, STOP OF 7 DAYS, 6 TABLETS/DAY, (UNKNOWN DOSAGE, PROBABLY 1400MG FOR BODY SURFA
     Route: 048
     Dates: start: 20141019
  2. XELODA [Suspect]
     Active Substance: CAPECITABINE
     Dosage: 5 TABLETS/DAY
     Route: 048
     Dates: start: 20141202
  3. SYMBICORT [Concomitant]
     Active Substance: BUDESONIDE\FORMOTEROL FUMARATE DIHYDRATE
     Dosage: 1 INHALATION TWICE PER DAY
     Route: 065
  4. NAVELBINE [Suspect]
     Active Substance: VINORELBINE TARTRATE
     Dosage: 60 MG/DAYS
     Route: 048
     Dates: start: 20141110
  5. XELODA [Suspect]
     Active Substance: CAPECITABINE
     Dosage: 5 TABLETS/DAY (UNKNOWN DOSAGE, PROBABLY 1 100 MG FOR BODY SURFACE DECREASED TO 1.5011 M2)
     Route: 048
     Dates: start: 20141110
  6. NAVELBINE [Suspect]
     Active Substance: VINORELBINE TARTRATE
     Indication: BREAST CANCER
     Dosage: 60 MG ON DAY 1 AND ON DAY 8 OF EACH CYCLE, 80 MG/DAY
     Route: 048
     Dates: start: 20141019
  7. NAVELBINE [Suspect]
     Active Substance: VINORELBINE TARTRATE
     Dosage: 60 MG/DAY
     Route: 048
     Dates: start: 20141202
  8. AERIUS (FRANCE) [Concomitant]
     Dosage: 1 1 TABLET IN THE EVENING
     Route: 065
  9. POTASSIUM CHLORIDE. [Concomitant]
     Active Substance: POTASSIUM CHLORIDE

REACTIONS (3)
  - Confusional state [Recovered/Resolved]
  - Aphasia [Recovered/Resolved]
  - Pyrexia [Recovered/Resolved]

NARRATIVE: CASE EVENT DATE: 20141205
